FAERS Safety Report 8144793-9 (Version None)
Quarter: 2012Q1

REPORT INFORMATION
  Report Type: 
  Country: None (occurrence: None)
  Receive Date: 20120217
  Receipt Date: 20120208
  Transmission Date: 20120608
  Serious: Yes (Death, Hospitalization)
  Sender: FDA-Public Use
  Company Number: US-ACTELION-A-NJ2011-52427

PATIENT

DRUGS (3)
  1. COUMADIN [Concomitant]
  2. ISOSORBIDE DINITRATE [Concomitant]
  3. TRACLEER [Suspect]
     Indication: PULMONARY ARTERIAL HYPERTENSION
     Dosage: UNK
     Route: 048
     Dates: start: 20110325

REACTIONS (5)
  - OXYGEN SATURATION DECREASED [None]
  - DEATH [None]
  - DYSPNOEA [None]
  - PULMONARY OEDEMA [None]
  - CHEST PAIN [None]
